FAERS Safety Report 24117901 (Version 1)
Quarter: 2024Q3

REPORT INFORMATION
  Report Type: Spontaneous
  Country: DE (occurrence: DE)
  Receive Date: 20240722
  Receipt Date: 20240722
  Transmission Date: 20241017
  Serious: Yes (Life-Threatening)
  Sender: ENDO
  Company Number: DE-ENDO USA, INC.-2024-002921

PATIENT
  Age: 66 Year
  Sex: Female

DRUGS (8)
  1. ADRENALIN [Suspect]
     Active Substance: EPINEPHRINE
     Indication: Cardiac arrest
     Dosage: 10 MG/10 ML, SINGLE
     Route: 042
  2. PACLITAXEL [Concomitant]
     Active Substance: PACLITAXEL
     Indication: Uterine cancer
     Dosage: 266 MILLIGRAM, INFUSION
     Route: 041
  3. PACLITAXEL [Concomitant]
     Active Substance: PACLITAXEL
     Dosage: UNK UNKNOWN, UNKNOWN (INITIAL DOSE)
     Route: 065
  4. DEXAMETHASONE [Concomitant]
     Active Substance: DEXAMETHASONE
     Indication: Product used for unknown indication
     Dosage: 20 MILLIGRAM, UNKNOWN
     Route: 048
  5. DEXAMETHASONE [Concomitant]
     Active Substance: DEXAMETHASONE
     Dosage: 20 MILLIGRAM, UNKNOWN
     Route: 041
  6. RANITIDINE [Concomitant]
     Active Substance: RANITIDINE
     Indication: Product used for unknown indication
     Dosage: 150 MILLIGRAM, UNKNOWN
     Route: 048
  7. CLEMASTINE FUMARATE [Concomitant]
     Active Substance: CLEMASTINE FUMARATE
     Indication: Product used for unknown indication
     Dosage: 2 MILLIGRAM, INFUSION
     Route: 041
  8. CLEMASTINE FUMARATE [Concomitant]
     Active Substance: CLEMASTINE FUMARATE
     Dosage: 2 MILLIGRAM, INFUSION (PUSH DOSE)
     Route: 041

REACTIONS (4)
  - Medication error [Recovered/Resolved]
  - Ventricular tachycardia [Recovered/Resolved]
  - Accidental overdose [Recovered/Resolved]
  - Therapeutic response unexpected [Recovered/Resolved]
